FAERS Safety Report 5024098-5 (Version None)
Quarter: 2006Q2

REPORT INFORMATION
  Report Type: 
  Country: None (occurrence: None)
  Receive Date: 20060607
  Receipt Date: 20060522
  Transmission Date: 20061013
  Serious: No
  Sender: FDA-Public Use
  Company Number: US200605004813

PATIENT
  Age: 66 Year
  Sex: Female

DRUGS (5)
  1. CYMBALTA [Suspect]
     Indication: DEPRESSION
     Dosage: 30 MG
     Dates: start: 20060401, end: 20060521
  2. PROZAC [Suspect]
     Indication: DEPRESSION
  3. DESYREL [Concomitant]
  4. OGEN [Concomitant]
  5. SYNTHROID [Concomitant]

REACTIONS (7)
  - CHROMATURIA [None]
  - DRUG INEFFECTIVE [None]
  - INFLUENZA LIKE ILLNESS [None]
  - MUSCULAR WEAKNESS [None]
  - PAIN [None]
  - PYREXIA [None]
  - RASH [None]
